FAERS Safety Report 14323812 (Version 1)
Quarter: 2017Q4

REPORT INFORMATION
  Report Type: Spontaneous
  Country: US (occurrence: US)
  Receive Date: 20171226
  Receipt Date: 20171226
  Transmission Date: 20180321
  Serious: No
  Sender: FDA-Public Use
  Company Number: US-ELI_LILLY_AND_COMPANY-US201712009748

PATIENT
  Sex: Male

DRUGS (1)
  1. TALTZ [Suspect]
     Active Substance: IXEKIZUMAB
     Indication: PSORIASIS
     Dosage: 80 MG, TWO 80MG INJECTION AT WEEK 0, ONE INJECTION AT WEEK 2 AND ONE INJECTION AT WEEK 4
     Route: 058

REACTIONS (1)
  - Therapy non-responder [Not Recovered/Not Resolved]
